FAERS Safety Report 5866892-4 (Version None)
Quarter: 2008Q3

REPORT INFORMATION
  Report Type: 
  Country: None (occurrence: None)
  Receive Date: 20080827
  Receipt Date: 20080812
  Transmission Date: 20090109
  Serious: Yes (Other)
  Sender: FDA-Public Use
  Company Number: 2008S1014659

PATIENT
  Age: 66 Year
  Sex: Male

DRUGS (3)
  1. SOTALOL HCL [Suspect]
     Indication: ATRIAL FIBRILLATION
     Dosage: 80 MG; DAILY; ORAL, 80 MG; TWICE A DAY; ORAL
     Route: 048
     Dates: start: 20080707, end: 20080711
  2. SOTALOL HCL [Suspect]
     Indication: ATRIAL FIBRILLATION
     Dosage: 80 MG; DAILY; ORAL, 80 MG; TWICE A DAY; ORAL
     Route: 048
     Dates: start: 20080715, end: 20080721
  3. SIMVASTATIN [Concomitant]

REACTIONS (2)
  - ASTHENIA [None]
  - HEART RATE INCREASED [None]
